FAERS Safety Report 10188243 (Version 1)
Quarter: 2014Q2

REPORT INFORMATION
  Report Type: Spontaneous
  Country: GR (occurrence: GR)
  Receive Date: 20140522
  Receipt Date: 20140522
  Transmission Date: 20141212
  Serious: Yes (Other)
  Sender: FDA-Public Use
  Company Number: GR-SA-2014SA061611

PATIENT
  Age: 72 Year
  Sex: Female

DRUGS (3)
  1. TAXOTERE [Suspect]
     Indication: BREAST CANCER METASTATIC
     Route: 042
  2. METFORMIN [Concomitant]
     Indication: TYPE 2 DIABETES MELLITUS
     Route: 048
  3. CALCIUM CHANNEL BLOCKERS [Concomitant]
     Indication: HYPERTENSION

REACTIONS (12)
  - Keratitis [Recovering/Resolving]
  - Vision blurred [Recovering/Resolving]
  - Erythema [Recovering/Resolving]
  - Foreign body sensation in eyes [Recovering/Resolving]
  - Lacrimation increased [Recovering/Resolving]
  - Conjunctival erosion [Recovering/Resolving]
  - Corneal oedema [Recovering/Resolving]
  - Corneal scar [Recovering/Resolving]
  - Visual acuity reduced [Recovering/Resolving]
  - Fibrosis [Recovering/Resolving]
  - Granuloma [Recovering/Resolving]
  - Epistaxis [Unknown]
